FAERS Safety Report 8831866 (Version 2)
Quarter: 2012Q4

REPORT INFORMATION
  Report Type: 
  Country: US (occurrence: US)
  Receive Date: 20121008
  Receipt Date: 20121102
  Transmission Date: 20130627
  Serious: Yes (Death)
  Sender: FDA-Public Use
  Company Number: US-ELI_LILLY_AND_COMPANY-US201210000604

PATIENT
  Age: 77 Year
  Sex: Female
  Weight: 46.71 kg

DRUGS (13)
  1. FORTEO [Suspect]
     Dosage: 20 ug, qd
     Route: 058
     Dates: start: 201112
  2. BUSPIRONE [Concomitant]
  3. CLONAZEPAM [Concomitant]
  4. AMLODIPINE [Concomitant]
  5. CRESTOR [Concomitant]
  6. OMEPRAZOLE [Concomitant]
  7. B COMPLEX [Concomitant]
  8. CITRACAL + D [Concomitant]
  9. TYLENOL ARTHRITIS [Concomitant]
  10. UNISOM [Concomitant]
  11. VENLAFAXIN [Concomitant]
  12. VITAMIN D [Concomitant]
     Dosage: 1000 u, qd
  13. REFRESH TEARS [Concomitant]

REACTIONS (1)
  - Cardio-respiratory arrest [Fatal]
